FAERS Safety Report 8817450 (Version 1)
Quarter: 2012Q4

REPORT INFORMATION
  Report Type: 
  Country: US (occurrence: US)
  Receive Date: 20121001
  Receipt Date: 20121001
  Transmission Date: 20130627
  Serious: Yes (Other)
  Sender: FDA-Public Use
  Company Number: US-ASTELLAS-2011US003994

PATIENT

DRUGS (9)
  1. VESICARE [Suspect]
     Indication: BLADDER SPASM
     Dosage: 5 mg, Unknown/D
     Route: 048
     Dates: start: 201006, end: 201008
  2. VESICARE [Suspect]
     Indication: MICTURITION URGENCY
     Dosage: 10 mg, Unknown/D
     Route: 048
     Dates: start: 201008, end: 20110302
  3. OMEGA COMBINATION [Concomitant]
     Indication: PRODUCT USED FOR UNKNOWN INDICATION
     Dosage: UNK
     Route: 065
  4. MULTIVITAMIN [Concomitant]
     Indication: PRODUCT USED FOR UNKNOWN INDICATION
     Dosage: UNK
     Route: 065
  5. CALCIUM +D [Concomitant]
     Indication: PRODUCT USED FOR UNKNOWN INDICATION
     Dosage: UNK
     Route: 065
  6. BABY ASPIRIN [Concomitant]
     Indication: PRODUCT USED FOR UNKNOWN INDICATION
     Dosage: UNK
     Route: 065
  7. ALLEGRA [Concomitant]
     Indication: PRODUCT USED FOR UNKNOWN INDICATION
     Dosage: UNK
     Route: 065
  8. ZYRTEC [Concomitant]
     Indication: PRODUCT USED FOR UNKNOWN INDICATION
     Dosage: UNK
     Route: 065
  9. FLUTICASONE PROPIONATE [Concomitant]
     Indication: SEASONAL ALLERGY
     Dosage: UNK
     Route: 045

REACTIONS (4)
  - Vitreous detachment [Not Recovered/Not Resolved]
  - Night blindness [Recovered/Resolved]
  - Vision blurred [Not Recovered/Not Resolved]
  - Accommodation disorder [Recovered/Resolved]
